FAERS Safety Report 7298406-9 (Version None)
Quarter: 2011Q1

REPORT INFORMATION
  Report Type: 
  Country: None (occurrence: None)
  Receive Date: 20110217
  Receipt Date: 20110128
  Transmission Date: 20110831
  Serious: Yes (Hospitalization)
  Sender: FDA-Public Use
  Company Number: US-B.I. PHARMACEUTICALS,INC./RIDGEFIELD-2011-BP-01091BP

PATIENT
  Sex: Female

DRUGS (1)
  1. PRADAXA [Suspect]
     Indication: CAROTID ARTERY DISEASE
     Dosage: 300 MG
     Route: 048
     Dates: start: 20110101

REACTIONS (3)
  - RESTLESS LEGS SYNDROME [None]
  - HYPERSENSITIVITY [None]
  - DYSPNOEA [None]
